FAERS Safety Report 4269880-7 (Version None)
Quarter: 2004Q1

REPORT INFORMATION
  Report Type: 
  Country: None (occurrence: None)
  Receive Date: 20040112
  Receipt Date: 20040108
  Transmission Date: 20041129
  Serious: Yes (Hospitalization, Other)
  Sender: FDA-Public Use
  Company Number: US-SHR-03-012130

PATIENT
  Age: 53 Year
  Sex: Female
  Weight: 59 kg

DRUGS (8)
  1. BETASERON [Suspect]
     Indication: MULTIPLE SCLEROSIS
     Dosage: 5.6 MIU, EVERY 2 D, SUBCUTANEOUS
     Route: 058
     Dates: start: 20030604, end: 20030726
  2. PREDNISONE [Suspect]
     Dosage: SEE IMAGE
     Dates: start: 20030702, end: 20030717
  3. PREDNISONE [Suspect]
     Dosage: SEE IMAGE
     Dates: start: 20030725
  4. NEURONTIN [Suspect]
     Dosage: SEE IMAGE
     Dates: start: 20030701, end: 20030719
  5. NEURONTIN [Suspect]
     Dosage: SEE IMAGE
     Dates: start: 20030720, end: 20030731
  6. NEURONTIN [Suspect]
     Dosage: SEE IMAGE
     Dates: start: 20030801
  7. PREMPRO [Concomitant]
  8. FLOMAX [Concomitant]

REACTIONS (4)
  - DIZZINESS [None]
  - LIVER FUNCTION TEST ABNORMAL [None]
  - PAIN [None]
  - TREMOR [None]
